FAERS Safety Report 6299547-5 (Version None)
Quarter: 2009Q3

REPORT INFORMATION
  Report Type: 
  Country: None (occurrence: None)
  Receive Date: 20090806
  Receipt Date: 20090728
  Transmission Date: 20100115
  Serious: Yes (Hospitalization)
  Sender: FDA-Public Use
  Company Number: US-ABBOTT-09P-163-0588302-00

PATIENT
  Sex: Female

DRUGS (5)
  1. HUMIRA [Suspect]
     Indication: ARTHRITIS
     Dates: start: 20080101, end: 20090701
  2. LEFLUNOMIDE [Suspect]
     Indication: ARTHRITIS
     Dates: start: 20070101
  3. FENTANYL [Concomitant]
     Indication: DRUG USE FOR UNKNOWN INDICATION
  4. OXYCODONE [Concomitant]
     Indication: DRUG USE FOR UNKNOWN INDICATION
  5. ATENOLOL [Concomitant]
     Indication: DRUG USE FOR UNKNOWN INDICATION

REACTIONS (8)
  - DYSPNOEA EXERTIONAL [None]
  - FATIGUE [None]
  - GRANULOMA [None]
  - LUNG INFILTRATION [None]
  - NIGHT SWEATS [None]
  - PYREXIA [None]
  - SPUTUM RETENTION [None]
  - TUBERCULOSIS [None]
